FAERS Safety Report 4712660-6 (Version None)
Quarter: 2005Q3

REPORT INFORMATION
  Report Type: 
  Country: None (occurrence: None)
  Receive Date: 20050706
  Receipt Date: 20041006
  Transmission Date: 20060218
  Serious: Yes (Death, Hospitalization)
  Sender: FDA-Public Use
  Company Number: US-2004-031399

PATIENT
  Age: 68 Year
  Sex: Female
  Weight: 58.3 kg

DRUGS (10)
  1. CAMPATH [Suspect]
     Indication: LYMPHOMA
     Dosage: SEE IMAGE
     Route: 058
     Dates: start: 20040602, end: 20040603
  2. CAMPATH [Suspect]
     Indication: LYMPHOMA
     Dosage: SEE IMAGE
     Route: 058
     Dates: start: 20040604, end: 20040607
  3. CAMPATH [Suspect]
     Indication: LYMPHOMA
     Dosage: SEE IMAGE
     Route: 058
     Dates: start: 20040608, end: 20040804
  4. . [Concomitant]
  5. . [Concomitant]
  6. DIPHENHYDRAMINE [Concomitant]
  7. ACETAMINOPHEN [Concomitant]
  8. BACTRIM DS [Concomitant]
  9. FAMCICLOVIR [Concomitant]
  10. DALMANE [Concomitant]

REACTIONS (9)
  - BONE MARROW DEPRESSION [None]
  - DIARRHOEA [None]
  - FEBRILE NEUTROPENIA [None]
  - HERPES SIMPLEX [None]
  - HYPONATRAEMIA [None]
  - METASTASES TO SKIN [None]
  - PLEURAL EFFUSION [None]
  - PNEUMONIA FUNGAL [None]
  - PSEUDOMONAL SEPSIS [None]
